FAERS Safety Report 13928022 (Version 1)
Quarter: 2017Q3

REPORT INFORMATION
  Report Type: Spontaneous
  Country: US (occurrence: None)
  Receive Date: 20170831
  Receipt Date: 20170831
  Transmission Date: 20171127
  Serious: Yes (Other)
  Sender: FDA-Public Use
  Company Number: None

PATIENT
  Age: 51 Year
  Sex: Female
  Weight: 55.79 kg

DRUGS (1)
  1. LEVOTHYROXINE 75MCG TABLETS [Suspect]
     Active Substance: LEVOTHYROXINE
     Route: 048
     Dates: start: 20170531, end: 20170824

REACTIONS (2)
  - Product quality issue [None]
  - Blood thyroid stimulating hormone increased [None]

NARRATIVE: CASE EVENT DATE: 20170824
